FAERS Safety Report 15930004 (Version 2)
Quarter: 2019Q1

REPORT INFORMATION
  Report Type: Spontaneous
  Country: JP (occurrence: JP)
  Receive Date: 20190206
  Receipt Date: 20190226
  Transmission Date: 20190417
  Serious: Yes (Other)
  Sender: FDA-Public Use
  Company Number: JP-BEH-2019099171

PATIENT
  Age: 4 Month
  Sex: Female
  Weight: .65 kg

DRUGS (1)
  1. ALBUMIN-BEHRING 20% [Suspect]
     Active Substance: ALBUMIN HUMAN
     Indication: PRODUCT USED FOR UNKNOWN INDICATION
     Route: 064

REACTIONS (3)
  - Oxygen saturation decreased [Unknown]
  - Neonatal respiratory distress syndrome [Unknown]
  - Hypoxia [Unknown]

NARRATIVE: CASE EVENT DATE: 20141009
